FAERS Safety Report 9661157 (Version 2)
Quarter: 2014Q2

REPORT INFORMATION
  Report Type: Spontaneous
  Country: US (occurrence: US)
  Receive Date: 20131031
  Receipt Date: 20140529
  Transmission Date: 20141212
  Serious: No
  Sender: FDA-Public Use
  Company Number: US-009507513-1310USA014132

PATIENT
  Sex: Female

DRUGS (1)
  1. MIRALAX [Suspect]
     Indication: ABNORMAL FAECES
     Dosage: UNK, QD
     Route: 048
     Dates: start: 201309

REACTIONS (2)
  - Flatulence [Unknown]
  - Incorrect drug administration duration [Unknown]
